FAERS Safety Report 6983884-2 (Version None)
Quarter: 2010Q3

REPORT INFORMATION
  Report Type: 
  Country: None (occurrence: None)
  Receive Date: 20100914
  Receipt Date: 20090304
  Transmission Date: 20110219
  Serious: No
  Sender: FDA-Public Use
  Company Number: US-WYE-H08476109

PATIENT
  Sex: Female

DRUGS (3)
  1. ADVIL LIQUI-GELS [Suspect]
     Indication: PAIN
     Dosage: UNKNOWN
     Route: 048
  2. PREMPRO [Suspect]
     Indication: HORMONE REPLACEMENT THERAPY
     Route: 048
  3. CHAPSTICK LIP BALM [Suspect]
     Dosage: UNKNOWN
     Route: 061

REACTIONS (1)
  - COELIAC DISEASE [None]
